FAERS Safety Report 12780140 (Version 1)
Quarter: 2016Q3

REPORT INFORMATION
  Report Type: Spontaneous
  Country: US (occurrence: US)
  Receive Date: 20160925
  Receipt Date: 20160925
  Transmission Date: 20161109
  Serious: Yes (Other)
  Sender: FDA-Public Use
  Company Number: None

PATIENT
  Age: 28 Year
  Sex: Female
  Weight: 83.25 kg

DRUGS (3)
  1. SERTRALINE [Concomitant]
     Active Substance: SERTRALINE HYDROCHLORIDE
  2. ATENOLOL. [Suspect]
     Active Substance: ATENOLOL
     Indication: VENTRICULAR EXTRASYSTOLES
     Dosage: 30 TABLETS TWICE A DAY ORAL
     Route: 048
     Dates: start: 20160828, end: 20160829
  3. HERBAL TEA [Concomitant]

REACTIONS (5)
  - Chest pain [None]
  - Chest discomfort [None]
  - Heart rate increased [None]
  - Dry mouth [None]
  - Pulse abnormal [None]

NARRATIVE: CASE EVENT DATE: 20160830
